FAERS Safety Report 23179507 (Version 5)
Quarter: 2024Q3

REPORT INFORMATION
  Report Type: Report from Study
  Country: US (occurrence: US)
  Receive Date: 20231114
  Receipt Date: 20240805
  Transmission Date: 20241016
  Serious: Yes (Other)
  Sender: ABBVIE
  Company Number: US-ABBVIE-4286554

PATIENT
  Sex: Male

DRUGS (4)
  1. HUMIRA [Suspect]
     Active Substance: ADALIMUMAB
     Indication: Ankylosing spondylitis
     Dosage: FORM STRENGTH: 40 MG ?LAST ADMIN DATE SEP 2021?CITRATE FREE
     Route: 058
     Dates: start: 20210910
  2. HUMIRA [Suspect]
     Active Substance: ADALIMUMAB
     Dosage: CITRATE FREE?FORM STRENGTH: 40MILLIGRAM
     Route: 058
  3. HUMIRA [Suspect]
     Active Substance: ADALIMUMAB
     Dosage: CITRATE FREE, ?FORM STRENGTH: 40MILLIGRAM?LAST ADMIN DATE SEP 2021
     Route: 058
     Dates: start: 20210909
  4. HUMIRA [Suspect]
     Active Substance: ADALIMUMAB
     Dosage: FORM STRENGTH: 40 MG ?LAST ADMIN DATE SEP 2021?CITRATE FREE
     Route: 058
     Dates: start: 20210912

REACTIONS (10)
  - Spondylitis [Not Recovered/Not Resolved]
  - Neck pain [Recovered/Resolved]
  - Spinal pain [Recovered/Resolved]
  - Arthralgia [Recovered/Resolved]
  - Pain in extremity [Unknown]
  - Neuralgia [Recovering/Resolving]
  - Inflammation [Not Recovered/Not Resolved]
  - Neuralgia [Unknown]
  - Muscle atrophy [Unknown]
  - Procedural failure [Unknown]
